FAERS Safety Report 24205644 (Version 1)
Quarter: 2024Q3

REPORT INFORMATION
  Report Type: Report from Study
  Country: KR (occurrence: KR)
  Receive Date: 20240813
  Receipt Date: 20240813
  Transmission Date: 20241016
  Serious: Yes (Hospitalization, Other)
  Sender: MERCK
  Company Number: KR-009507513-2203KOR006267

PATIENT
  Age: 36 Year
  Sex: Female
  Weight: 49.5 kg

DRUGS (21)
  1. LETERMOVIR [Suspect]
     Active Substance: LETERMOVIR
     Indication: Antiviral prophylaxis
     Dosage: STRENGTH 480 MG; ONCE DAILY (QD)
     Route: 048
     Dates: start: 20210323, end: 20210625
  2. IV GLOBULIN SN [Concomitant]
     Indication: Infection prophylaxis
     Dosage: 23950 MILLIGRAM, ONCE A DAY (QD)
     Route: 042
     Dates: start: 20210409, end: 20210409
  3. ETHINYL ESTRADIOL\GESTODENE [Concomitant]
     Active Substance: ETHINYL ESTRADIOL\GESTODENE
     Indication: Vaginal haemorrhage
     Dosage: 1 DOSAGE FORM (TABLET), ONCE A DAY (QD)
     Route: 048
     Dates: start: 20210311, end: 20210423
  4. LANSOPRAZOLE [Concomitant]
     Active Substance: LANSOPRAZOLE
     Indication: Gastrooesophageal reflux prophylaxis
     Dosage: 30 MILLIGRAM, ONCE A DAY (QD)
     Route: 048
     Dates: start: 20210414, end: 20210706
  5. URSODIOL [Concomitant]
     Active Substance: URSODIOL
     Indication: Antiviral prophylaxis
     Dosage: 200 MILLIGRAM, 3 TIMES PER DAY (TID)
     Route: 048
     Dates: start: 20210329
  6. SULFAMETHOXAZOLE\TRIMETHOPRIM [Concomitant]
     Active Substance: SULFAMETHOXAZOLE\TRIMETHOPRIM
     Indication: Infection prophylaxis
     Dosage: 1 TABLET (TAB), ONCE DAILY
     Route: 048
     Dates: start: 20210315
  7. VACRAX [ACICLOVIR] [Concomitant]
     Indication: Antiviral prophylaxis
     Dosage: 400 MILLIGRAM, 2 TIMES PER DAY (BID)
     Route: 048
     Dates: start: 20210408, end: 20210419
  8. VACRAX [ACICLOVIR] [Concomitant]
     Dosage: 200 MILLIGRAM, 2 TIMES PER DAY (BID)
     Route: 048
     Dates: start: 20210420, end: 20210601
  9. TACROBELL SR [Concomitant]
     Indication: Prophylaxis against graft versus host disease
     Dosage: 1.5 MILLIGRAM, ONCE A DAY (QD)
     Route: 048
     Dates: start: 20210409, end: 20210409
  10. TACROBELL SR [Concomitant]
     Dosage: 2.75 MILLIGRAM, ONCE A DAY (QD)
     Route: 048
     Dates: start: 20210410, end: 20210412
  11. TACROBELL SR [Concomitant]
     Dosage: 1.75 MILLIGRAM, ONCE A DAY (QD)
     Route: 048
     Dates: start: 20210413, end: 20210419
  12. TACROBELL SR [Concomitant]
     Dosage: 1.5 MILLIGRAM, ONCE A DAY (QD)
     Route: 048
     Dates: start: 20210420, end: 20210503
  13. ZOYLEX [ACICLOVIR] [Concomitant]
     Indication: Antiviral prophylaxis
     Dosage: 260 MILLIGRAM, 2 TIMES PER DAY (BID)
     Route: 042
     Dates: start: 20210312, end: 20210407
  14. FOTAGEL [Concomitant]
     Indication: Diarrhoea
     Dosage: 20 MILLILITER, 3 TIMES PER DAY (TID)
     Route: 048
     Dates: start: 20210318, end: 20210406
  15. FOTAGEL [Concomitant]
     Dosage: 20 MILLILITER, 3 TIMES PER DAY (TID)
     Route: 048
     Dates: start: 20210407, end: 20210503
  16. SAMNAM LOPERAMIDE [Concomitant]
     Indication: Diarrhoea
     Dosage: 8 MILLIGRAM, 2 TIMES PER DAY (BID)
     Route: 048
     Dates: start: 20210405, end: 20210409
  17. SAMNAM LOPERAMIDE [Concomitant]
     Dosage: 4 MILLIGRAM, 2 TIMES PER DAY (BID)
     Route: 048
     Dates: start: 20210410, end: 20210412
  18. SAMNAM LOPERAMIDE [Concomitant]
     Dosage: 2 MILLIGRAM, 2 TIMES PER DAY (BID)
     Route: 048
     Dates: start: 20210413, end: 20210426
  19. TACROLIMUS [Concomitant]
     Active Substance: TACROLIMUS
     Indication: Prophylaxis against graft versus host disease
     Dosage: 0.8 MILLIGRAM, ONCE A DAY (QD)
     Dates: start: 20210406, end: 20210409
  20. BECLOMETHASONE DIPROPIONATE [Concomitant]
     Active Substance: BECLOMETHASONE DIPROPIONATE
     Indication: Diarrhoea
     Dosage: 10 MILLIGRAM, ONCE A DAY (QD)
     Dates: start: 20210402, end: 20210419
  21. BECLOMETHASONE DIPROPIONATE [Concomitant]
     Active Substance: BECLOMETHASONE DIPROPIONATE
     Dosage: 5 MILLIGRAM, ONCE A DAY (QD)
     Dates: start: 20210420, end: 20210427

REACTIONS (6)
  - Abdominal pain upper [Recovered/Resolved]
  - Cholecystitis acute [Recovered/Resolved]
  - Clostridium difficile colitis [Recovered/Resolved]
  - Graft versus host disease in eye [Recovered/Resolved]
  - C-reactive protein increased [Recovered/Resolved]
  - Diarrhoea [Recovered/Resolved]

NARRATIVE: CASE EVENT DATE: 20210420
